FAERS Safety Report 14505174 (Version 3)
Quarter: 2018Q1

REPORT INFORMATION
  Report Type: Spontaneous
  Country: BR (occurrence: BR)
  Receive Date: 20180208
  Receipt Date: 20180223
  Transmission Date: 20180509
  Serious: Yes (Death)
  Sender: FDA-Public Use
  Company Number: BR-PFIZER INC-2018054089

PATIENT
  Age: 66 Year
  Sex: Male

DRUGS (4)
  1. ZOLTEC [Suspect]
     Active Substance: FLUCONAZOLE
     Indication: IMMUNOSUPPRESSION
     Dosage: 200 MG, EVERY 12 HOURS
     Route: 042
     Dates: start: 20180105, end: 20180114
  2. ZOLTEC [Suspect]
     Active Substance: FLUCONAZOLE
     Indication: RESPIRATORY GAS EXCHANGE DISORDER
  3. ZOLTEC [Suspect]
     Active Substance: FLUCONAZOLE
     Indication: SCAN ABNORMAL
  4. ZOLTEC [Suspect]
     Active Substance: FLUCONAZOLE
     Indication: LEUKOPENIA

REACTIONS (3)
  - Disease progression [Fatal]
  - Product use in unapproved indication [Unknown]
  - HIV infection [Fatal]

NARRATIVE: CASE EVENT DATE: 20180105
